FAERS Safety Report 19690318 (Version 1)
Quarter: 2021Q3

REPORT INFORMATION
  Report Type: Report from Study
  Country: CA (occurrence: CA)
  Receive Date: 20210812
  Receipt Date: 20210812
  Transmission Date: 20211014
  Serious: Yes (Other)
  Sender: FDA-Public Use
  Company Number: CA-JNJFOC-20210806682

PATIENT
  Sex: Female

DRUGS (9)
  1. SELEXIPAG [Suspect]
     Active Substance: SELEXIPAG
     Indication: PULMONARY HYPERTENSION
     Route: 048
     Dates: start: 20170529
  2. DOMPERIDONE [Concomitant]
     Active Substance: DOMPERIDONE
  3. SYNTHROID [Concomitant]
     Active Substance: LEVOTHYROXINE SODIUM
  4. SELEXIPAG [Suspect]
     Active Substance: SELEXIPAG
     Indication: CONNECTIVE TISSUE DISORDER
  5. OXYGEN. [Concomitant]
     Active Substance: OXYGEN
     Dosage: 2.5?3 LITER WHEN NEEDED
     Route: 065
  6. PLAQUENIL [HYDROXYCHLOROQUINE PHOSPHATE] [Concomitant]
     Active Substance: HYDROXYCHLOROQUINE DIPHOSPHATE
  7. ADALAT [Concomitant]
     Active Substance: NIFEDIPINE
  8. DEXILANT [Concomitant]
     Active Substance: DEXLANSOPRAZOLE
  9. MACITENTAN [Suspect]
     Active Substance: MACITENTAN
     Indication: PULMONARY HYPERTENSION
     Route: 048
     Dates: start: 20141106

REACTIONS (1)
  - Cough [Not Recovered/Not Resolved]
